FAERS Safety Report 5485505-7 (Version None)
Quarter: 2007Q4

REPORT INFORMATION
  Report Type: 
  Country: None (occurrence: None)
  Receive Date: 20071010
  Receipt Date: 20071010
  Transmission Date: 20080405
  Serious: Yes (Life-Threatening, Hospitalization, Disabling)
  Sender: FDA-Public Use
  Company Number: None

PATIENT
  Age: 46 Year
  Sex: Female
  Weight: 82.1011 kg

DRUGS (4)
  1. PROVENTIL [Suspect]
     Indication: ASTHMA
  2. PROVENTIL [Suspect]
     Indication: CHRONIC OBSTRUCTIVE PULMONARY DISEASE
  3. PROAIR HFA [Suspect]
  4. LEVALBUTEROL HCL [Suspect]

REACTIONS (6)
  - ASTHMA [None]
  - DRUG INEFFECTIVE [None]
  - DYSPNOEA [None]
  - LOSS OF CONSCIOUSNESS [None]
  - PHARMACEUTICAL PRODUCT COMPLAINT [None]
  - RESPIRATORY ARREST [None]
